FAERS Safety Report 19573016 (Version 2)
Quarter: 2021Q4

REPORT INFORMATION
  Report Type: Report from Study
  Country: NL (occurrence: NL)
  Receive Date: 20210715
  Receipt Date: 20211227
  Transmission Date: 20220303
  Serious: Yes (Death, Life-Threatening)
  Sender: FDA-Public Use
  Company Number: NL-BIOGEN-2021BI01030191

PATIENT
  Age: 64 Year
  Sex: Female

DRUGS (4)
  1. AVONEX PEN [Suspect]
     Active Substance: INTERFERON BETA-1A
     Indication: Multiple sclerosis
     Route: 030
  2. AVONEX PEN [Suspect]
     Active Substance: INTERFERON BETA-1A
     Route: 030
  3. AVONEX PEN [Suspect]
     Active Substance: INTERFERON BETA-1A
  4. AVONEX PEN [Suspect]
     Active Substance: INTERFERON BETA-1A

REACTIONS (1)
  - Breast cancer metastatic [Fatal]

NARRATIVE: CASE EVENT DATE: 20200610
